FAERS Safety Report 10021906 (Version 1)
Quarter: 2014Q1

REPORT INFORMATION
  Report Type: Report from Study
  Country: DE (occurrence: DE)
  Receive Date: 20140319
  Receipt Date: 20140319
  Transmission Date: 20141002
  Serious: Yes (Hospitalization)
  Sender: FDA-Public Use
  Company Number: DE-GLAXOSMITHKLINE-A1065506A

PATIENT
  Age: 45 Year
  Sex: Female
  Weight: 73 kg

DRUGS (3)
  1. BENLYSTA [Suspect]
     Indication: SYSTEMIC LUPUS ERYTHEMATOSUS
     Route: 042
  2. MYCOPHENOLATE [Concomitant]
  3. HYDROXYCHLOROQUINE [Concomitant]

REACTIONS (1)
  - Systemic lupus erythematosus [Recovering/Resolving]
